FAERS Safety Report 10583603 (Version 1)
Quarter: 2014Q4

REPORT INFORMATION
  Report Type: Spontaneous
  Country: GB (occurrence: None)
  Receive Date: 20141112
  Receipt Date: 20141112
  Transmission Date: 20150529
  Serious: Yes (Other)
  Sender: FDA-Public Use
  Company Number: INT_00511_2014

PATIENT
  Age: 57 Year
  Sex: Female

DRUGS (2)
  1. RADIOTHERAPY [Concomitant]
     Active Substance: RADIATION THERAPY
  2. CISPLATIN (CISPLATIN) (HQ SPECIALTY) [Suspect]
     Active Substance: CISPLATIN
     Indication: CERVIX CARCINOMA
     Dosage: (40 MG/M2 1X/WEEK)

REACTIONS (1)
  - Retinal artery occlusion [None]
